FAERS Safety Report 11158818 (Version 2)
Quarter: 2015Q2

REPORT INFORMATION
  Report Type: Report from Study
  Country: US (occurrence: US)
  Receive Date: 20150603
  Receipt Date: 20150623
  Transmission Date: 20150821
  Serious: Yes (Other)
  Sender: FDA-Public Use
  Company Number: US-SA-2015SA063585

PATIENT
  Age: 52 Year
  Sex: Female

DRUGS (2)
  1. LEMTRADA [Suspect]
     Active Substance: ALEMTUZUMAB
     Indication: MULTIPLE SCLEROSIS
     Route: 041
     Dates: start: 20150420, end: 20150424
  2. BETASERON [Concomitant]
     Active Substance: INTERFERON BETA-1B

REACTIONS (12)
  - Haemorrhage urinary tract [Recovered/Resolved]
  - Dysuria [Unknown]
  - Dyspnoea [Unknown]
  - Back pain [Unknown]
  - Blood pressure increased [Recovered/Resolved]
  - Kidney infection [Unknown]
  - Speech disorder [Unknown]
  - Pain [Unknown]
  - Muscular weakness [Unknown]
  - Dysphagia [Unknown]
  - Fatigue [Unknown]
  - Heart rate increased [Unknown]

NARRATIVE: CASE EVENT DATE: 2015
